FAERS Safety Report 10648548 (Version 1)
Quarter: 2014Q4

REPORT INFORMATION
  Report Type: Spontaneous
  Country: JP (occurrence: JP)
  Receive Date: 20141212
  Receipt Date: 20141212
  Transmission Date: 20150529
  Serious: Yes (Hospitalization, Other)
  Sender: FDA-Public Use
  Company Number: JP-BAYER-2014-180062

PATIENT
  Age: 32 Year
  Sex: Female
  Weight: 70 kg

DRUGS (5)
  1. NIFEDIPINE. [Suspect]
     Active Substance: NIFEDIPINE
     Indication: HYPERTENSIVE NEPHROPATHY
     Dosage: UNK
     Route: 048
  2. OXYTOCIN. [Concomitant]
     Active Substance: OXYTOCIN
     Indication: LABOUR INDUCTION
     Route: 041
  3. RITODRINE HYDROCHLORIDE [Concomitant]
     Active Substance: RITODRINE HYDROCHLORIDE
     Indication: THREATENED LABOUR
     Dosage: DAILY DOSE 100 MG
     Route: 041
  4. RITODRINE HYDROCHLORIDE [Concomitant]
     Active Substance: RITODRINE HYDROCHLORIDE
     Indication: THREATENED LABOUR
     Dosage: DAILY DOSE 250 MG
     Route: 041
  5. PROSTIN E2 [Concomitant]
     Active Substance: DINOPROSTONE
     Indication: LABOUR INDUCTION
     Dosage: UNK
     Route: 048

REACTIONS (4)
  - Disseminated intravascular coagulation [Recovered/Resolved]
  - Caesarean section [Recovered/Resolved]
  - Exposure during pregnancy [None]
  - Anaphylactoid syndrome of pregnancy [Recovered/Resolved]
